FAERS Safety Report 4494509-2 (Version None)
Quarter: 2004Q4

REPORT INFORMATION
  Report Type: 
  Country: None (occurrence: None)
  Receive Date: 20041103
  Receipt Date: 20041025
  Transmission Date: 20050328
  Serious: Yes (Hospitalization)
  Sender: FDA-Public Use
  Company Number: 2004-10-1524

PATIENT
  Age: 62 Year
  Sex: Female

DRUGS (7)
  1. REBETOL [Suspect]
     Indication: HEPATITIS C
     Dosage: 600 MG ORAL
     Route: 048
     Dates: start: 20030606, end: 20030901
  2. INTRON A [Suspect]
     Indication: HEPATITIS C
     Dosage: 6 MIU INTRAMUSCULAR
     Route: 030
     Dates: start: 20030606, end: 20041018
  3. ADALAT [Concomitant]
  4. DIOVAN TABLETS [Concomitant]
  5. BISOPROLOL FUMARATE [Concomitant]
  6. CONIEL (BENIDIPINE HCL) TABLETS [Concomitant]
  7. MICARDIS [Concomitant]

REACTIONS (5)
  - BLOOD PRESSURE INCREASED [None]
  - CEREBRAL HAEMORRHAGE [None]
  - CONDITION AGGRAVATED [None]
  - PLATELET COUNT DECREASED [None]
  - SPEECH DISORDER [None]
